FAERS Safety Report 7501303-4 (Version None)
Quarter: 2011Q2

REPORT INFORMATION
  Report Type: 
  Country: None (occurrence: None)
  Receive Date: 20110524
  Receipt Date: 20110520
  Transmission Date: 20111010
  Serious: Yes (Disabling, Other)
  Sender: FDA-Public Use
  Company Number: IT-PFIZER INC-2011102260

PATIENT
  Age: 61 Year
  Sex: Female

DRUGS (6)
  1. MAG 2 [Concomitant]
     Dosage: UNK
  2. TRACLEER [Concomitant]
     Indication: SKIN ULCER
     Dosage: 125 MG, UNK
     Route: 048
     Dates: start: 20110318, end: 20110509
  3. LERCANIDIPINE HYDROCHLORIDE [Concomitant]
     Dosage: UNK
  4. CELEBREX [Suspect]
     Indication: MUSCULOSKELETAL PAIN
     Dosage: 200 MG, 1X/DAY
     Route: 048
     Dates: start: 20050101, end: 20110323
  5. LANSOPRAZOLE [Concomitant]
     Dosage: 20 MG, UNK
     Route: 048
  6. ZOFENOPRIL CALCIUM [Concomitant]
     Dosage: 30 MG, UNK
     Route: 048

REACTIONS (4)
  - CEREBELLAR SYNDROME [None]
  - DYSARTHRIA [None]
  - EMBOLIC STROKE [None]
  - HEMIPARESIS [None]
